FAERS Safety Report 15725380 (Version 1)
Quarter: 2018Q4

REPORT INFORMATION
  Report Type: Spontaneous
  Country: FR (occurrence: FR)
  Receive Date: 20181215
  Receipt Date: 20181215
  Transmission Date: 20190205
  Serious: Yes (Death)
  Sender: FDA-Public Use
  Company Number: FR-TEVA-2018-FR-985738

PATIENT
  Age: 67 Year
  Sex: Male
  Weight: 90 kg

DRUGS (4)
  1. AMIODARONE [Suspect]
     Active Substance: AMIODARONE
     Indication: ARRHYTHMIA PROPHYLAXIS
     Dosage: 400 MILLIGRAM DAILY;
     Route: 048
     Dates: end: 20181113
  2. PREVISCAN 20 MG, COMPRIM? S?CABLE [Suspect]
     Active Substance: FLUINDIONE
     Indication: CARDIAC VALVE PROSTHESIS USER
     Dosage: 1 DOSAGE FORMS DAILY;
     Route: 048
     Dates: start: 20170922, end: 20181112
  3. PANTOPRAZOLE [Suspect]
     Active Substance: PANTOPRAZOLE
     Indication: PRODUCT USED FOR UNKNOWN INDICATION
     Dosage: 40 MILLIGRAM DAILY;
     Route: 048
     Dates: end: 20181113
  4. INEGY 10 MG/40 MG, COMPRIM? [Suspect]
     Active Substance: EZETIMIBE\SIMVASTATIN
     Indication: DYSLIPIDAEMIA
     Dosage: 1 DOSAGE FORMS DAILY;
     Route: 048
     Dates: end: 20181113

REACTIONS (2)
  - Subarachnoid haemorrhage [Fatal]
  - Haemorrhagic transformation stroke [Fatal]

NARRATIVE: CASE EVENT DATE: 20181112
